FAERS Safety Report 10172747 (Version 1)
Quarter: 2014Q2

REPORT INFORMATION
  Report Type: Spontaneous
  Country: US (occurrence: None)
  Receive Date: 20140513
  Receipt Date: 20140513
  Transmission Date: 20141212
  Serious: Yes (Other)
  Sender: FDA-Public Use
  Company Number: 2010S1000395

PATIENT
  Age: 82 Year
  Sex: Female
  Weight: 54 kg

DRUGS (8)
  1. FLEET PHOSPHO-SODA ORAL SALINE LAXATIVE, GINGER-LEMON FLAVOR [Suspect]
     Indication: COLONOSCOPY
     Route: 048
     Dates: start: 20070528, end: 20070528
  2. GLUCOPHAGE (METFORMIN) [Concomitant]
  3. LISINOPRIL (LISINOPRIL) [Concomitant]
  4. AMARYL (GLIMEPIRIDE) [Concomitant]
  5. PLAVIX (CLOPIDOGREL BISULFATE) [Concomitant]
  6. ZOCOR (SIMVASTATIN) [Concomitant]
  7. BYETTA (EXENATIDE) [Concomitant]
  8. HYDROCHLOROTHIAZIDE [Concomitant]

REACTIONS (16)
  - Dizziness [None]
  - Malaise [None]
  - Hyperkalaemia [None]
  - Gastroenteritis [None]
  - Renal failure chronic [None]
  - Renal artery stenosis [None]
  - Diarrhoea [None]
  - Abdominal pain upper [None]
  - Renal failure [None]
  - Renal failure chronic [None]
  - Nephrogenic anaemia [None]
  - Transient ischaemic attack [None]
  - Cerebrovascular accident [None]
  - Cardiac valve disease [None]
  - Cardiac aneurysm [None]
  - Condition aggravated [None]
